FAERS Safety Report 4428686-6 (Version None)
Quarter: 2004Q3

REPORT INFORMATION
  Report Type: 
  Country: None (occurrence: None)
  Receive Date: 20040818
  Receipt Date: 20031106
  Transmission Date: 20050211
  Serious: No
  Sender: FDA-Public Use
  Company Number: US-BRISTOL-MYERS SQUIBB COMPANY-12429130

PATIENT
  Age: 46 Year
  Sex: Female
  Weight: 53 kg

DRUGS (1)
  1. TEQUIN [Suspect]
     Indication: SURGERY
     Route: 048
     Dates: start: 20031105, end: 20031105

REACTIONS (3)
  - CHEST PAIN [None]
  - DIZZINESS [None]
  - ERYTHEMA [None]
